FAERS Safety Report 7679698-0 (Version None)
Quarter: 2011Q3

REPORT INFORMATION
  Report Type: 
  Country: None (occurrence: None)
  Receive Date: 20110812
  Receipt Date: 20110808
  Transmission Date: 20111222
  Serious: Yes (Other)
  Sender: FDA-Public Use
  Company Number: US-PFIZER INC-2011182023

PATIENT
  Sex: Male
  Weight: 81.633 kg

DRUGS (6)
  1. LISINOPRIL [Suspect]
     Indication: HYPERTENSION
     Dosage: UNK
  2. VITAMIN B-12 [Concomitant]
     Dosage: UNK
  3. DEPO-TESTOSTERONE [Suspect]
     Indication: BLOOD TESTOSTERONE DECREASED
     Dosage: 200 MG/ML, ONCE EVERY 2 WEEKS
     Dates: start: 20100901, end: 20110301
  4. DEPO-TESTOSTERONE [Suspect]
     Dosage: 300 MG/ML, ONCE EVERY 2 WEEKS
     Dates: start: 20110301, end: 20110101
  5. DEPO-TESTOSTERONE [Suspect]
     Dosage: 200 MG/ML, ONCE EVERY 2 WEEKS
     Dates: start: 20110101
  6. CORGARD [Concomitant]
     Indication: CARDIAC DISORDER
     Dosage: 40 MG, UNK

REACTIONS (10)
  - HEADACHE [None]
  - METABOLIC DISORDER [None]
  - SCROTAL DISORDER [None]
  - HYPERTENSION [None]
  - HYPERSENSITIVITY [None]
  - LIBIDO DECREASED [None]
  - DRUG INEFFECTIVE [None]
  - TESTICULAR DISORDER [None]
  - ERYTHEMA [None]
  - ARTHROPOD STING [None]
